FAERS Safety Report 10074337 (Version 1)
Quarter: 2014Q2

REPORT INFORMATION
  Report Type: Spontaneous
  Country: US (occurrence: US)
  Receive Date: 20140413
  Receipt Date: 20140413
  Transmission Date: 20141212
  Serious: Yes (Other)
  Sender: FDA-Public Use
  Company Number: US-ROCHE-1376178

PATIENT
  Sex: Male

DRUGS (3)
  1. KLONOPIN [Suspect]
     Indication: SLEEP DISORDER
     Dosage: 1 AT NIGHT AT BEDTIME
     Route: 048
  2. LISINOPRIL [Concomitant]
     Indication: HYPERTENSION
  3. VYTORIN [Concomitant]
     Indication: BLOOD CHOLESTEROL

REACTIONS (3)
  - Angle closure glaucoma [Unknown]
  - Arthritis [Unknown]
  - Dyspnoea [Unknown]
